FAERS Safety Report 6163675-5 (Version None)
Quarter: 2009Q2

REPORT INFORMATION
  Report Type: 
  Country: None (occurrence: None)
  Receive Date: 20090422
  Receipt Date: 20090414
  Transmission Date: 20091009
  Serious: Yes (Hospitalization)
  Sender: FDA-Public Use
  Company Number: PHEH2009US03711

PATIENT
  Sex: Female

DRUGS (1)
  1. LOPRESSOR [Suspect]
     Indication: HYPERTENSION
     Dosage: 50 MG, ONCE/SINGLE
     Dates: start: 20090411, end: 20090411

REACTIONS (5)
  - CENTRAL NERVOUS SYSTEM LESION [None]
  - COORDINATION ABNORMAL [None]
  - CRYING [None]
  - HYPERTENSION [None]
  - LIMB DISCOMFORT [None]
